FAERS Safety Report 12496964 (Version 1)
Quarter: 2016Q2

REPORT INFORMATION
  Report Type: Spontaneous
  Country: CA (occurrence: CA)
  Receive Date: 20160624
  Receipt Date: 20160624
  Transmission Date: 20160815
  Serious: Yes (Other)
  Sender: FDA-Public Use
  Company Number: CA-HQ SPECIALTY-CA-2016INT000418

PATIENT
  Age: 54 Year
  Sex: Female

DRUGS (6)
  1. PLAQUENIL                          /00072602/ [Suspect]
     Active Substance: HYDROXYCHLOROQUINE DIPHOSPHATE
     Indication: RHEUMATOID ARTHRITIS
     Dosage: 400 MG (200 MG, 2 IN 1 D)
     Route: 048
     Dates: start: 20120301
  2. XELJANZ [Suspect]
     Active Substance: TOFACITINIB CITRATE
     Dosage: 10 MG (5 MG, 2 IN 1 D)
     Route: 048
     Dates: start: 20160509
  3. ARAVA [Suspect]
     Active Substance: LEFLUNOMIDE
     Indication: RHEUMATOID ARTHRITIS
     Dosage: (10 MG,1 IN 1 D)
     Route: 048
     Dates: start: 20150129, end: 201601
  4. METHOTREXATE SODIUM. [Suspect]
     Active Substance: METHOTREXATE SODIUM
     Indication: RHEUMATOID ARTHRITIS
     Dosage: 3.5714 MG (25 MG, 1 IN 1 W)
     Route: 048
     Dates: start: 20121203, end: 201605
  5. XELJANZ [Suspect]
     Active Substance: TOFACITINIB CITRATE
     Indication: RHEUMATOID ARTHRITIS
     Dosage: 10 MG (5 MG, 2 IN 1 D)
     Route: 048
     Dates: start: 20151110
  6. XELJANZ [Suspect]
     Active Substance: TOFACITINIB CITRATE
     Dosage: 10 MG (5 MG, 2 IN 1 D)
     Route: 048
     Dates: start: 20160214, end: 20160501

REACTIONS (12)
  - Activities of daily living impaired [Unknown]
  - Musculoskeletal stiffness [Not Recovered/Not Resolved]
  - Constipation [Recovering/Resolving]
  - Porphyria acute [Unknown]
  - Abdominal pain upper [Recovering/Resolving]
  - Pain [Recovered/Resolved]
  - Abdominal discomfort [Recovered/Resolved]
  - Crying [Not Recovered/Not Resolved]
  - Herpes zoster [Recovered/Resolved]
  - Nausea [Recovering/Resolving]
  - Dyspepsia [Recovered/Resolved]
  - Emotional disorder [Not Recovered/Not Resolved]

NARRATIVE: CASE EVENT DATE: 201601
